FAERS Safety Report 21813743 (Version 2)
Quarter: 2023Q2

REPORT INFORMATION
  Report Type: Report from Study
  Country: US (occurrence: US)
  Receive Date: 20230104
  Receipt Date: 20230501
  Transmission Date: 20230721
  Serious: No
  Sender: FDA-Public Use
  Company Number: US-ABBVIE-4221082

PATIENT
  Sex: Male
  Weight: 93 kg

DRUGS (3)
  1. SKYRIZI [Suspect]
     Active Substance: RISANKIZUMAB-RZAA
     Indication: Psoriasis
     Dosage: FORM STRENGTH: 150 MILLIGRAM
     Route: 058
     Dates: end: 202201
  2. SKYRIZI [Suspect]
     Active Substance: RISANKIZUMAB-RZAA
     Dosage: FROM STRENGTH 150 MILLIGRAM
     Route: 058
     Dates: start: 20221230
  3. SKYRIZI [Suspect]
     Active Substance: RISANKIZUMAB-RZAA
     Dosage: FORM STRENGTH: 150 MILLIGRAM
     Route: 058
     Dates: start: 20230317

REACTIONS (6)
  - Pruritus [Unknown]
  - Scratch [Unknown]
  - Pain [Unknown]
  - Dandruff [Unknown]
  - Scab [Unknown]
  - Feeling abnormal [Unknown]
